FAERS Safety Report 6931131-X (Version None)
Quarter: 2010Q3

REPORT INFORMATION
  Report Type: 
  Country: None (occurrence: None)
  Receive Date: 20100817
  Receipt Date: 20100817
  Transmission Date: 20110219
  Serious: Yes (Hospitalization)
  Sender: FDA-Public Use
  Company Number: None

PATIENT
  Age: 72 Year
  Sex: Female

DRUGS (13)
  1. WARFARIN SODIUM [Suspect]
     Indication: ATRIAL FIBRILLATION
     Dosage: 4MG TU,TH,SA,SU PO P ; 6 MG M, 2, F PO
     Route: 048
  2. WARFARIN SODIUM [Suspect]
     Indication: CARDIAC VALVE PROSTHESIS USER
     Dosage: 4MG TU,TH,SA,SU PO P ; 6 MG M, 2, F PO
     Route: 048
  3. NEXIUM [Concomitant]
  4. BUFFERIN [Concomitant]
  5. METOPROLOL TARTRATE [Concomitant]
  6. SIMVASTATIN [Concomitant]
  7. VICODIN [Concomitant]
  8. TYLENOL PM [Concomitant]
  9. FUROSEMIDE [Concomitant]
  10. KLOR-CON [Concomitant]
  11. FERROUS SULFATE TAB [Suspect]
  12. VIT D [Concomitant]
  13. CALCIUM [Concomitant]

REACTIONS (1)
  - HAEMARTHROSIS [None]
